FAERS Safety Report 5755381-3 (Version None)
Quarter: 2008Q2

REPORT INFORMATION
  Report Type: 
  Country: None (occurrence: None)
  Receive Date: 20080602
  Receipt Date: 20080519
  Transmission Date: 20081010
  Serious: Yes (Hospitalization, Other)
  Sender: FDA-Public Use
  Company Number: JP-ROCHE-544439

PATIENT
  Sex: Male
  Weight: 18 kg

DRUGS (2)
  1. TAMIFLU [Suspect]
     Indication: INFLUENZA
     Route: 048
     Dates: start: 20070309, end: 20070309
  2. ANTIHISTAMINES [Concomitant]

REACTIONS (5)
  - DELIRIUM FEBRILE [None]
  - DIARRHOEA [None]
  - FEBRILE CONVULSION [None]
  - NAUSEA [None]
  - VOMITING [None]
